FAERS Safety Report 5333402-X (Version None)
Quarter: 2007Q2

REPORT INFORMATION
  Report Type: 
  Country: None (occurrence: None)
  Receive Date: 20070522
  Receipt Date: 20070522
  Transmission Date: 20071010
  Serious: No
  Sender: FDA-Public Use
  Company Number: None

PATIENT
  Age: 63 Year
  Sex: Male

DRUGS (3)
  1. LISINOPRIL AND HYDROCHLOROTHIAZIDE [Suspect]
     Indication: DIABETIC COMPLICATION
     Dosage: 12/5/20MG EVERY DAY PO
     Route: 048
     Dates: start: 20060629, end: 20070103
  2. LISINOPRIL AND HYDROCHLOROTHIAZIDE [Suspect]
     Indication: HYPERTENSION
     Dosage: 12/5/20MG EVERY DAY PO
     Route: 048
     Dates: start: 20060629, end: 20070103
  3. LISINOPRIL AND HYDROCHLOROTHIAZIDE [Suspect]
     Indication: PROTEINURIA
     Dosage: 12/5/20MG EVERY DAY PO
     Route: 048
     Dates: start: 20060629, end: 20070103

REACTIONS (1)
  - ANGIOEDEMA [None]
